FAERS Safety Report 8577128-8 (Version None)
Quarter: 2012Q2

REPORT INFORMATION
  Report Type: 
  Country: None (occurrence: None)
  Receive Date: 20120423
  Receipt Date: 20101019
  Transmission Date: 20120825
  Serious: Yes (Other)
  Sender: FDA-Public Use
  Company Number: PHEH2009US07236

PATIENT
  Age: 79 Year
  Sex: Female
  Weight: 63.2 kg

DRUGS (6)
  1. DYAZIDE [Concomitant]
  2. FOSINOPRIL SODIUM [Concomitant]
  3. EXJADE [Suspect]
     Indication: IRON OVERLOAD
     Dosage: 1250 MG, QD, ORAL 2000 MG QD, ORAL 1500 MG, QD, ORAL
     Route: 048
     Dates: start: 20100304
  4. EXJADE [Suspect]
     Indication: MYELODYSPLASTIC SYNDROME
     Dosage: 1250 MG, QD, ORAL 2000 MG QD, ORAL 1500 MG, QD, ORAL
     Route: 048
     Dates: start: 20100304
  5. EXJADE [Suspect]
     Indication: IRON OVERLOAD
     Dosage: 1250 MG, QD, ORAL 2000 MG QD, ORAL 1500 MG, QD, ORAL
     Route: 048
     Dates: start: 20090304, end: 20090702
  6. EXJADE [Suspect]
     Indication: MYELODYSPLASTIC SYNDROME
     Dosage: 1250 MG, QD, ORAL 2000 MG QD, ORAL 1500 MG, QD, ORAL
     Route: 048
     Dates: start: 20090304, end: 20090702

REACTIONS (3)
  - RENAL DISORDER [None]
  - BLOOD CREATININE INCREASED [None]
  - RENAL FUNCTION TEST ABNORMAL [None]
